FAERS Safety Report 14020814 (Version 2)
Quarter: 2017Q3

REPORT INFORMATION
  Report Type: Spontaneous
  Country: SA (occurrence: SA)
  Receive Date: 20170928
  Receipt Date: 20170929
  Transmission Date: 20171128
  Serious: Yes (Death, Other)
  Sender: FDA-Public Use
  Company Number: PHHY2017SA142406

PATIENT
  Sex: Female

DRUGS (6)
  1. DIPHENHYDRAMINE. [Concomitant]
     Active Substance: DIPHENHYDRAMINE
     Indication: PREMEDICATION
     Route: 065
  2. DEXAMETHASONE. [Concomitant]
     Active Substance: DEXAMETHASONE
     Indication: PREMEDICATION
     Route: 065
  3. EBETAXEL [Suspect]
     Active Substance: PACLITAXEL
     Dosage: 358 ML, UNK
     Route: 042
  4. EBETAXEL [Suspect]
     Active Substance: PACLITAXEL
     Indication: ENDOMETRIAL ADENOCARCINOMA
     Dosage: 245 MG, UNK
     Route: 042
  5. EBETAXEL [Suspect]
     Active Substance: PACLITAXEL
     Dosage: 300 MG,
     Route: 065
  6. RANITIDINE. [Concomitant]
     Active Substance: RANITIDINE
     Indication: PREMEDICATION
     Route: 065

REACTIONS (10)
  - Hypersensitivity [Fatal]
  - Loss of consciousness [Fatal]
  - Anaphylactic shock [Fatal]
  - Hot flush [Fatal]
  - Respiratory arrest [Fatal]
  - Erythema [Fatal]
  - Cough [Fatal]
  - Agitation [Fatal]
  - Hypoaesthesia [Fatal]
  - Wheezing [Fatal]
